FAERS Safety Report 8564335-3 (Version None)
Quarter: 2012Q3

REPORT INFORMATION
  Report Type: 
  Country: None (occurrence: None)
  Receive Date: 20120803
  Receipt Date: 20120725
  Transmission Date: 20120928
  Serious: Yes (Hospitalization)
  Sender: FDA-Public Use
  Company Number: US-BAYER-2011-040255

PATIENT
  Age: 26 Year
  Sex: Female
  Weight: 66 kg

DRUGS (7)
  1. VALTREX [Concomitant]
     Dosage: 500 MG, UNK
  2. YAZ [Suspect]
     Indication: ORAL CONTRACEPTION
     Dosage: UNK
     Route: 048
     Dates: start: 20090523, end: 20091107
  3. AZITHROMYCIN [Concomitant]
     Dosage: UNK
     Dates: start: 20090806
  4. YAZ [Suspect]
     Indication: PREMENSTRUAL SYNDROME
  5. ANTIVIRALS FOR SYSTEMIC USE [Concomitant]
     Indication: HERPES VIRUS INFECTION
  6. ANTIVIRALS FOR SYSTEMIC USE [Concomitant]
     Indication: HERPES ZOSTER
     Dosage: UNK
     Route: 048
     Dates: start: 20090101
  7. YAZ [Suspect]
     Indication: MENSTRUATION IRREGULAR

REACTIONS (9)
  - CHEST PAIN [None]
  - ANXIETY [None]
  - EMOTIONAL DISTRESS [None]
  - PULMONARY EMBOLISM [None]
  - INJURY [None]
  - ANHEDONIA [None]
  - PAIN [None]
  - DYSPNOEA [None]
  - DEEP VEIN THROMBOSIS [None]
